FAERS Safety Report 4805830-X (Version None)
Quarter: 2005Q4

REPORT INFORMATION
  Report Type: 
  Country: None (occurrence: None)
  Receive Date: 20051021
  Receipt Date: 20051011
  Transmission Date: 20060501
  Serious: Yes (Other)
  Sender: FDA-Public Use
  Company Number: US-JNJFOC-20051002798

PATIENT
  Sex: Female
  Weight: 68.04 kg

DRUGS (2)
  1. ELMIRON [Suspect]
     Indication: CYSTITIS INTERSTITIAL
     Route: 048
  2. PROTONIX [Concomitant]
     Route: 048

REACTIONS (2)
  - ANOREXIA [None]
  - WEIGHT DECREASED [None]
